FAERS Safety Report 18592292 (Version 1)
Quarter: 2020Q4

REPORT INFORMATION
  Report Type: Spontaneous
  Country: FR (occurrence: FR)
  Receive Date: 20201208
  Receipt Date: 20201208
  Transmission Date: 20210114
  Serious: Yes (Hospitalization)
  Sender: FDA-Public Use
  Company Number: FR-TEVA-2020-FR-1855620

PATIENT
  Age: 69 Year
  Sex: Female
  Weight: 91 kg

DRUGS (11)
  1. TOPALGIC L.P. 100 MG, COMPRIME A LIBERATION PROLONGEE [Concomitant]
     Active Substance: TRAMADOL HYDROCHLORIDE
  2. KARDEGIC [Concomitant]
     Active Substance: ASPIRIN DL-LYSINE
  3. DOLIPRANE [Concomitant]
     Active Substance: ACETAMINOPHEN
  4. COVERSYL 10 MG, COMPRIME PELLICULE [Concomitant]
     Active Substance: PERINDOPRIL
  5. PANTOPRAZOLE [Suspect]
     Active Substance: PANTOPRAZOLE
     Indication: GASTROOESOPHAGEAL REFLUX DISEASE
     Dosage: 80MILLIGRAM
     Dates: start: 20201102
  6. METFORMINE [Concomitant]
     Active Substance: METFORMIN HYDROCHLORIDE
  7. LEVOTHYROX [Concomitant]
     Active Substance: LEVOTHYROXINE
  8. DIAMICRON 60 MG, COMPRIMESECABLE A LIBERATION MODIFIEE [Concomitant]
  9. PREDNISOLONE ARROW 20 MG, COMPRIME EFFERVESCENT SECABLE [Suspect]
     Active Substance: PREDNISOLONE
     Indication: SCIATICA
     Route: 048
     Dates: start: 20201102, end: 20201108
  10. GAVISCON [Concomitant]
     Active Substance: ALUMINUM HYDROXIDE\MAGNESIUM CARBONATE
  11. LIPANTHYL 145 MG, COMPRIME PELLICULE [Concomitant]
     Active Substance: FENOFIBRATE

REACTIONS (2)
  - Abdominal pain upper [Not Recovered/Not Resolved]
  - Pancreatitis acute [Not Recovered/Not Resolved]

NARRATIVE: CASE EVENT DATE: 20201102
